FAERS Safety Report 4450321-1 (Version None)
Quarter: 2004Q3

REPORT INFORMATION
  Report Type: 
  Country: None (occurrence: None)
  Receive Date: 20040914
  Receipt Date: 20040831
  Transmission Date: 20050211
  Serious: No
  Sender: FDA-Public Use
  Company Number: 04P-087-0270766-00

PATIENT
  Age: 62 Year
  Sex: Female

DRUGS (2)
  1. TRICOR [Suspect]
     Indication: HYPERLIPIDAEMIA
     Dosage: 150 MG, 1 IN 1 D, ORAL
     Route: 048
     Dates: start: 20000601, end: 20040605
  2. AMLODIPINE BESYLATE [Concomitant]

REACTIONS (1)
  - GRANULOCYTOPENIA [None]
